FAERS Safety Report 5869680-8 (Version None)
Quarter: 2008Q3

REPORT INFORMATION
  Report Type: 
  Country: None (occurrence: None)
  Receive Date: 20080829
  Receipt Date: 20080707
  Transmission Date: 20090109
  Serious: No
  Sender: FDA-Public Use
  Company Number: US023715

PATIENT
  Age: 71 Year
  Sex: Male
  Weight: 74.8435 kg

DRUGS (9)
  1. FENTORA [Suspect]
     Indication: NEUROPATHY PERIPHERAL
     Dosage: 200 UG BUCCAL
     Route: 002
     Dates: start: 20080101, end: 20080101
  2. FENTORA [Suspect]
     Indication: NEUROPATHY PERIPHERAL
     Dosage: 400 UG USED 1/2 TO 1 TABLET TID BUCCAL
     Route: 002
     Dates: start: 20080101
  3. FENTORA [Suspect]
     Indication: NEUROPATHY PERIPHERAL
     Dosage: 200 UG 400 UG TABLET CUT INTO TWO PIECES. QD BUCCAL
     Route: 002
  4. NEURONTIN [Concomitant]
  5. TEGRETOL [Concomitant]
  6. LISINOPRIL [Concomitant]
  7. METHADONE HCL [Concomitant]
  8. LIPITOR [Concomitant]
  9. FLOMAX [Concomitant]

REACTIONS (4)
  - DRUG ADMINISTRATION ERROR [None]
  - DRUG INEFFECTIVE [None]
  - FATIGUE [None]
  - NAUSEA [None]
